FAERS Safety Report 10584531 (Version 1)
Quarter: 2014Q4

REPORT INFORMATION
  Report Type: Spontaneous
  Country: US (occurrence: None)
  Receive Date: 20141113
  Receipt Date: 20141113
  Transmission Date: 20150529
  Serious: Yes (Other)
  Sender: FDA-Public Use
  Company Number: None

PATIENT
  Age: 46 Year
  Sex: Male
  Weight: 101 kg

DRUGS (2)
  1. SOLIRIS [Suspect]
     Active Substance: ECULIZUMAB
     Indication: TRANSPLANT REJECTION
     Dosage: EVERY 2 WEEKS, INTRAVENOUS
     Dates: start: 20141106, end: 20141106
  2. SOLIRIS [Suspect]
     Active Substance: ECULIZUMAB
     Indication: RENAL TRANSPLANT
     Dosage: EVERY 2 WEEKS, INTRAVENOUS
     Dates: start: 20141106, end: 20141106

REACTIONS (1)
  - Rash [None]

NARRATIVE: CASE EVENT DATE: 20141111
